FAERS Safety Report 8566001-7 (Version None)
Quarter: 2012Q3

REPORT INFORMATION
  Report Type: 
  Country: None (occurrence: None)
  Receive Date: 20120803
  Receipt Date: 20110809
  Transmission Date: 20120928
  Serious: No
  Sender: FDA-Public Use
  Company Number: US-ABBOTT-11P-163-0845336-00

PATIENT
  Sex: Female
  Weight: 67.646 kg

DRUGS (8)
  1. NIASPAN [Suspect]
     Indication: BLOOD CHOLESTEROL INCREASED
     Dates: start: 20080101, end: 20080101
  2. CALCIUM W/VITAMIN D [Concomitant]
     Indication: MINERAL SUPPLEMENTATION
  3. NIASPAN [Suspect]
     Dosage: 1000 MG, DAILY
     Dates: start: 20080101, end: 20080101
  4. ASPIRIN [Concomitant]
     Indication: CARDIAC DISORDER
  5. LIPITOR [Concomitant]
     Indication: BLOOD CHOLESTEROL INCREASED
  6. ASPIRIN [Concomitant]
     Indication: PROPHYLAXIS
  7. NIASPAN [Suspect]
     Dosage: 1500 MG, DAILY
     Dates: start: 20080101
  8. MULTI-VITAMIN [Concomitant]
     Indication: VITAMIN SUPPLEMENTATION

REACTIONS (3)
  - FLUSHING [None]
  - ALOPECIA [None]
  - KERATOSIS PILARIS [None]
